FAERS Safety Report 7638099-1 (Version None)
Quarter: 2011Q3

REPORT INFORMATION
  Report Type: 
  Country: None (occurrence: None)
  Receive Date: 20110727
  Receipt Date: 20110719
  Transmission Date: 20111222
  Serious: No
  Sender: FDA-Public Use
  Company Number: US-JNJFOC-20110708031

PATIENT
  Age: 57 Year
  Sex: Male
  Weight: 78.47 kg

DRUGS (2)
  1. DURAGESIC-100 [Suspect]
     Indication: PSORIATIC ARTHROPATHY
     Route: 062
     Dates: start: 20110601
  2. DURAGESIC-100 [Suspect]
     Indication: CANCER PAIN
     Route: 062
     Dates: start: 20110601

REACTIONS (3)
  - PRODUCT QUALITY ISSUE [None]
  - PRODUCT ADHESION ISSUE [None]
  - WRONG TECHNIQUE IN DRUG USAGE PROCESS [None]
